FAERS Safety Report 24421654 (Version 1)
Quarter: 2024Q4

REPORT INFORMATION
  Report Type: Spontaneous
  Country: US (occurrence: US)
  Receive Date: 20241010
  Receipt Date: 20241010
  Transmission Date: 20250114
  Serious: Yes (Life-Threatening, Hospitalization, Other)
  Sender: AUROBINDO
  Company Number: US-MLMSERVICE-20240923-PI201464-00271-1

PATIENT
  Age: 42 Year
  Sex: Female

DRUGS (2)
  1. PREDNISONE [Suspect]
     Active Substance: PREDNISONE
     Indication: Hepatitis alcoholic
     Dosage: 40 MILLIGRAM, EVERY WEEK (PREDNISONE 40MG GIVEN FOR 1 WEEK AND DISCHARGED ON A PREDNISONE TAPER)
     Route: 065
  2. PREDNISONE [Suspect]
     Active Substance: PREDNISONE
     Dosage: UNK ( (PREDNISONE 40MG GIVEN FOR 1 WEEK AND DISCHARGED ON A PREDNISONE TAPER))
     Route: 065

REACTIONS (1)
  - Pulmonary nocardiosis [Recovered/Resolved]
